FAERS Safety Report 5521313-6 (Version None)
Quarter: 2007Q4

REPORT INFORMATION
  Report Type: 
  Country: None (occurrence: None)
  Receive Date: 20071119
  Receipt Date: 20070327
  Transmission Date: 20080405
  Serious: No
  Sender: FDA-Public Use
  Company Number: US-BOEHRINGER INGELHEIM PHARMACEUTICALS, INC.-2007-BP-04263BP

PATIENT
  Age: 40 Year
  Sex: Female

DRUGS (2)
  1. ZANTAC 150 [Suspect]
     Indication: DYSPEPSIA
     Dosage: 1 TABLET QD
     Route: 048
     Dates: start: 20070201
  2. ZANTAC 150 [Suspect]

REACTIONS (2)
  - HEADACHE [None]
  - INSOMNIA [None]
